FAERS Safety Report 15306544 (Version 1)
Quarter: 2018Q3

REPORT INFORMATION
  Report Type: Spontaneous
  Country: US (occurrence: US)
  Receive Date: 20180822
  Receipt Date: 20180822
  Transmission Date: 20181010
  Serious: No
  Sender: FDA-Public Use
  Company Number: US-APOTEX-2018AP016370

PATIENT
  Sex: Female

DRUGS (1)
  1. FLUTICASONE PROPIONATE NASAL SPRAY USP [Suspect]
     Active Substance: FLUTICASONE PROPIONATE
     Indication: SINUS DISORDER
     Route: 065

REACTIONS (5)
  - Drug ineffective [Unknown]
  - Migraine [Unknown]
  - Influenza [Unknown]
  - Sinus disorder [Unknown]
  - General physical health deterioration [Unknown]
